FAERS Safety Report 25844065 (Version 1)
Quarter: 2025Q3

REPORT INFORMATION
  Report Type: Spontaneous
  Country: CN (occurrence: CN)
  Receive Date: 20250925
  Receipt Date: 20250925
  Transmission Date: 20251020
  Serious: Yes (Hospitalization)
  Sender: BEIGENE
  Company Number: CN-BEIGENE-BGN-2025-016183

PATIENT
  Age: 60 Year
  Weight: 80 kg

DRUGS (2)
  1. TISLELIZUMAB [Suspect]
     Active Substance: TISLELIZUMAB
     Indication: Lung neoplasm malignant
     Dosage: 200 MILLIGRAM, Q3WK
  2. SODIUM CHLORIDE [Concomitant]
     Active Substance: SODIUM CHLORIDE
     Indication: Adverse event
     Dosage: 100 MILLILITER, Q3WK

REACTIONS (3)
  - Liver injury [Not Recovered/Not Resolved]
  - Pruritus [Unknown]
  - Pyrexia [Unknown]
